FAERS Safety Report 17014437 (Version 1)
Quarter: 2019Q4

REPORT INFORMATION
  Report Type: Spontaneous
  Country: GB (occurrence: GB)
  Receive Date: 20191111
  Receipt Date: 20191111
  Transmission Date: 20200122
  Serious: Yes (Hospitalization)
  Sender: FDA-Public Use
  Company Number: GB-TEVA-2019-GB-1135717

PATIENT
  Age: 87 Year
  Sex: Female

DRUGS (8)
  1. ADCAL-D3 [Concomitant]
     Active Substance: CALCIUM CARBONATE\CHOLECALCIFEROL
     Dosage: 750MG/200UNIT, 2 DF/ DAY
     Route: 048
  2. OMEPRAZOLE. [Concomitant]
     Active Substance: OMEPRAZOLE
     Dosage: IN THE MORNING, 20MG/ DAY
     Route: 048
  3. SALBUTAMOL [Concomitant]
     Active Substance: ALBUTEROL
     Dosage: PUFFS, 2 DF
     Route: 050
  4. SERTRALINE [Concomitant]
     Active Substance: SERTRALINE HYDROCHLORIDE
     Dosage: IN THE MORNING, 100MG/ DAY
     Route: 048
  5. BUDESONIDE. [Concomitant]
     Active Substance: BUDESONIDE
     Dosage: 200MCG DRY POWDER INHALER
     Route: 050
  6. NITROFURANTOIN. [Suspect]
     Active Substance: NITROFURANTOIN
     Dosage: 200MG/ DAY/ 3 DAYS
     Route: 048
  7. LISINOPRIL. [Concomitant]
     Active Substance: LISINOPRIL
     Dosage: IN THE MORNING, 5 MG/ DAY
     Route: 048
  8. ZEROBASE [Concomitant]
     Active Substance: MINERAL OIL\PARAFFIN

REACTIONS (4)
  - Delirium [Unknown]
  - Treatment failure [Recovered/Resolved]
  - Sepsis [Unknown]
  - Pyrexia [Unknown]
